FAERS Safety Report 7230897-1 (Version None)
Quarter: 2011Q1

REPORT INFORMATION
  Report Type: 
  Country: None (occurrence: None)
  Receive Date: 20110118
  Receipt Date: 20110106
  Transmission Date: 20110831
  Serious: Yes (Other)
  Sender: FDA-Public Use
  Company Number: US-ROCHE-731010

PATIENT
  Sex: Female
  Weight: 72.6 kg

DRUGS (1)
  1. ACCUTANE [Suspect]
     Route: 065
     Dates: start: 19900101, end: 19900701

REACTIONS (3)
  - INTESTINAL OBSTRUCTION [None]
  - CROHN'S DISEASE [None]
  - GASTROINTESTINAL INJURY [None]
